FAERS Safety Report 12156523 (Version 6)
Quarter: 2017Q1

REPORT INFORMATION
  Report Type: Spontaneous
  Country: CA (occurrence: CA)
  Receive Date: 20160307
  Receipt Date: 20170203
  Transmission Date: 20170428
  Serious: Yes (Other)
  Sender: FDA-Public Use
  Company Number: CA-TEVA-640675USA

PATIENT
  Age: 73 Year
  Sex: Female

DRUGS (17)
  1. CYCLOBENZAPRINE [Suspect]
     Active Substance: CYCLOBENZAPRINE
     Indication: MUSCLE RELAXANT THERAPY
     Route: 048
  2. PANTOPRAZOLE [Suspect]
     Active Substance: PANTOPRAZOLE SODIUM
     Indication: GASTROOESOPHAGEAL REFLUX DISEASE
     Dosage: REGIMEN #1
     Route: 048
  3. RIVOTRIL [Suspect]
     Active Substance: CLONAZEPAM
     Indication: ANXIETY
     Dosage: REGIMEN #1
     Route: 048
  4. ACETAMINOPHEN. [Concomitant]
     Active Substance: ACETAMINOPHEN
  5. LORAZEPAM. [Concomitant]
     Active Substance: LORAZEPAM
  6. DOXAZOSIN [Suspect]
     Active Substance: DOXAZOSIN\DOXAZOSIN MESYLATE
     Indication: PRODUCT USED FOR UNKNOWN INDICATION
     Dosage: REGIMEN #1
     Route: 048
  7. CLONIDINE. [Suspect]
     Active Substance: CLONIDINE
     Indication: PRODUCT USED FOR UNKNOWN INDICATION
     Dosage: REGIMEN #1
     Route: 048
  8. TYLENOL [Concomitant]
     Active Substance: ACETAMINOPHEN
  9. ACETYLSALICYLIC ACID [Concomitant]
     Active Substance: ASPIRIN
  10. AMLODIPINE [Suspect]
     Active Substance: AMLODIPINE BESYLATE
     Indication: BLOOD PRESSURE ABNORMAL
     Dosage: REGIMEN #1
     Route: 048
  11. SOTALOL. [Suspect]
     Active Substance: SOTALOL
     Indication: BLOOD PRESSURE ABNORMAL
     Dosage: REGIMEN #1
     Route: 048
  12. BUTRANS [Suspect]
     Active Substance: BUPRENORPHINE
     Indication: PAIN
     Dosage: REGIMEN # 1
     Route: 062
  13. IMOVANE [Concomitant]
     Active Substance: ZOPICLONE
     Route: 048
  14. LACTULOSE. [Concomitant]
     Active Substance: LACTULOSE
     Route: 048
  15. HYDROCHLOROTHIAZIDE. [Suspect]
     Active Substance: HYDROCHLOROTHIAZIDE
     Indication: PRODUCT USED FOR UNKNOWN INDICATION
     Dosage: REGIMEN #1
     Route: 048
  16. BUPRENORPHINE. [Suspect]
     Active Substance: BUPRENORPHINE
     Indication: PRODUCT USED FOR UNKNOWN INDICATION
     Dosage: REGIMEN #1
     Route: 062
  17. DIOVAN HCT [Suspect]
     Active Substance: HYDROCHLOROTHIAZIDE\VALSARTAN
     Indication: BLOOD PRESSURE ABNORMAL
     Dosage: REGIMEN #1
     Route: 048

REACTIONS (1)
  - Urinary incontinence [Unknown]
